FAERS Safety Report 5696495-6 (Version None)
Quarter: 2008Q2

REPORT INFORMATION
  Report Type: 
  Country: None (occurrence: None)
  Receive Date: 20080408
  Receipt Date: 20080328
  Transmission Date: 20081010
  Serious: Yes (Death, Other)
  Sender: FDA-Public Use
  Company Number: GB-WYE-G01316608

PATIENT
  Age: 49 Year
  Sex: Male
  Weight: 75 kg

DRUGS (12)
  1. VENLAFAXINE HYDROCHLORIDE [Suspect]
     Dosage: 150MG AND 75MG PER DAY
     Dates: start: 20070724
  2. CLOZAPINE [Concomitant]
     Dosage: UNKNOWN
  3. DOCUSATE SODIUM [Concomitant]
     Dosage: UNKNOWN
  4. FERROUS SULFATE TAB [Concomitant]
     Dosage: UNKNOWN
  5. ENSURE PLUS [Concomitant]
     Dosage: UNKNOWN
  6. GAVISCON [Concomitant]
     Dosage: UNKNOWN
  7. HYOSCINE HBR HYT [Concomitant]
     Dosage: UNKNOWN
  8. LANSOPRAZOLE [Concomitant]
     Dosage: UNKNOWN
  9. MOVICOL [Concomitant]
     Dosage: UNKNOWN
  10. MULTI-VITAMINS [Concomitant]
     Dosage: UNKNOWN
  11. AMISULPRIDE [Concomitant]
     Dosage: UNKNOWN
  12. FYBOGEL [Concomitant]
     Dosage: UNKNOWN

REACTIONS (4)
  - DRUG LEVEL INCREASED [None]
  - DRUG TOXICITY [None]
  - PULMONARY CONGESTION [None]
  - PULMONARY OEDEMA [None]
